FAERS Safety Report 12517328 (Version 4)
Quarter: 2017Q3

REPORT INFORMATION
  Report Type: Spontaneous
  Country: CA (occurrence: CA)
  Receive Date: 20160630
  Receipt Date: 20170803
  Transmission Date: 20171127
  Serious: Yes (Other)
  Sender: FDA-Public Use
  Company Number: CA-ROCHE-1784285

PATIENT
  Age: 37 Year
  Sex: Female

DRUGS (9)
  1. XOLAIR [Suspect]
     Active Substance: OMALIZUMAB
     Dosage: UNK
     Route: 058
     Dates: start: 20170104
  2. SINGULAIR [Concomitant]
     Active Substance: MONTELUKAST SODIUM
     Indication: PRODUCT USED FOR UNKNOWN INDICATION
     Route: 065
  3. SYMBICORT [Concomitant]
     Active Substance: BUDESONIDE\FORMOTEROL FUMARATE DIHYDRATE
     Indication: PRODUCT USED FOR UNKNOWN INDICATION
     Route: 065
  4. XOLAIR [Suspect]
     Active Substance: OMALIZUMAB
     Dosage: UNK
     Route: 058
     Dates: start: 20160912
  5. XOLAIR [Suspect]
     Active Substance: OMALIZUMAB
     Indication: ASTHMA
     Route: 058
     Dates: start: 20141223
  6. BRICANYL [Concomitant]
     Active Substance: TERBUTALINE SULFATE
     Indication: PRODUCT USED FOR UNKNOWN INDICATION
     Route: 065
  7. XOLAIR [Suspect]
     Active Substance: OMALIZUMAB
     Dosage: UNK
     Route: 058
     Dates: start: 20160606
  8. TUDORZA PRESSAIR [Concomitant]
     Active Substance: ACLIDINIUM BROMIDE
     Indication: PRODUCT USED FOR UNKNOWN INDICATION
     Dosage: TUDORZA GENUAIR
     Route: 065
  9. XOLAIR [Suspect]
     Active Substance: OMALIZUMAB
     Route: 058
     Dates: start: 20170703

REACTIONS (15)
  - Cough [Not Recovered/Not Resolved]
  - Sinus congestion [Unknown]
  - Nasopharyngitis [Unknown]
  - Eczema [Not Recovered/Not Resolved]
  - Respiratory tract congestion [Unknown]
  - Nausea [Recovered/Resolved]
  - Rhinorrhoea [Unknown]
  - Dyspnoea [Unknown]
  - Influenza like illness [Recovered/Resolved]
  - Sputum discoloured [Unknown]
  - Pulmonary congestion [Unknown]
  - Hypersensitivity [Unknown]
  - Pyrexia [Recovered/Resolved]
  - Injection site hypersensitivity [Unknown]
  - Body temperature decreased [Unknown]

NARRATIVE: CASE EVENT DATE: 20141223
